FAERS Safety Report 7468208-9 (Version None)
Quarter: 2011Q2

REPORT INFORMATION
  Report Type: 
  Country: None (occurrence: None)
  Receive Date: 20110509
  Receipt Date: 20110429
  Transmission Date: 20111010
  Serious: Yes (Other)
  Sender: FDA-Public Use
  Company Number: US-ASTRAZENECA-2009UW12857

PATIENT
  Age: 773 Month
  Sex: Female
  Weight: 75.7 kg

DRUGS (6)
  1. INDERAL [Concomitant]
  2. IMDUR [Concomitant]
  3. BENICAR [Concomitant]
     Indication: HYPERTENSION
  4. NEXIUM [Suspect]
     Route: 048
  5. ASPIRIN [Concomitant]
  6. ARIMIDEX [Suspect]
     Indication: BREAST CANCER
     Route: 048
     Dates: start: 20081101

REACTIONS (11)
  - WEIGHT INCREASED [None]
  - ALOPECIA [None]
  - NAUSEA [None]
  - BREAST CANCER [None]
  - GAIT DISTURBANCE [None]
  - PAIN [None]
  - ASTHENIA [None]
  - MUSCLE SPASMS [None]
  - GASTRIC HAEMORRHAGE [None]
  - OEDEMA PERIPHERAL [None]
  - HOT FLUSH [None]
